FAERS Safety Report 23884644 (Version 1)
Quarter: 2024Q2

REPORT INFORMATION
  Report Type: Report from Study
  Country: US (occurrence: US)
  Receive Date: 20240522
  Receipt Date: 20240522
  Transmission Date: 20240716
  Serious: Yes (Death)
  Sender: FDA-Public Use
  Company Number: US-BAYER-2024A074578

PATIENT
  Age: 67 Year
  Sex: Female
  Weight: 46.259 kg

DRUGS (12)
  1. ADEMPAS [Suspect]
     Active Substance: RIOCIGUAT
     Indication: Pulmonary arterial hypertension
     Dosage: UNK
     Dates: start: 20201209
  2. ADEMPAS [Suspect]
     Active Substance: RIOCIGUAT
     Indication: Pulmonary arterial hypertension
     Dosage: 2.5 MG, TID
     Route: 048
  3. DIAZEPAM [Concomitant]
     Active Substance: DIAZEPAM
  4. TYLENOL [Concomitant]
     Active Substance: ACETAMINOPHEN
  5. VIMPAT [Concomitant]
     Active Substance: LACOSAMIDE
  6. ALDACTONE [Concomitant]
     Active Substance: SPIRONOLACTONE
  7. ALENDRONATE SODIUM [Concomitant]
     Active Substance: ALENDRONATE SODIUM
  8. VALIUM [Concomitant]
     Active Substance: DIAZEPAM
  9. ELIQUIS [Concomitant]
     Active Substance: APIXABAN
  10. LISINOPRIL [Concomitant]
     Active Substance: LISINOPRIL
  11. BUMETANIDE [Concomitant]
     Active Substance: BUMETANIDE
  12. FERROUS SULFATE [Concomitant]
     Active Substance: FERROUS SULFATE

REACTIONS (1)
  - Death [Fatal]

NARRATIVE: CASE EVENT DATE: 20240514
